FAERS Safety Report 9626263 (Version 1)
Quarter: 2013Q4

REPORT INFORMATION
  Report Type: Spontaneous
  Country: US (occurrence: None)
  Receive Date: 20131015
  Receipt Date: 20131015
  Transmission Date: 20140711
  Serious: Yes (Other)
  Sender: FDA-Public Use
  Company Number: None

PATIENT
  Age: 69 Year
  Sex: Female
  Weight: 80.74 kg

DRUGS (1)
  1. POLYMYXIN B\TRIMETHOPRIM SULFATE [Suspect]
     Indication: CONJUNCTIVITIS
     Dosage: 2 DROPS, INTO THE EYE
     Dates: start: 20131010, end: 20131012

REACTIONS (2)
  - Eye irritation [None]
  - Eye swelling [None]
